FAERS Safety Report 22169052 (Version 2)
Quarter: 2023Q2

REPORT INFORMATION
  Report Type: Spontaneous
  Country: JP (occurrence: None)
  Receive Date: 20230404
  Receipt Date: 20230407
  Transmission Date: 20230722
  Serious: Yes (Hospitalization, Other)
  Sender: FDA-Public Use
  Company Number: JP-VistaPharm, Inc.-VER202303-000173

PATIENT
  Age: 40 Year
  Sex: Male
  Weight: 35 kg

DRUGS (3)
  1. METFORMIN HYDROCHLORIDE [Suspect]
     Active Substance: METFORMIN HYDROCHLORIDE
     Indication: Diabetes mellitus
     Dosage: 750 MG
     Route: 065
  2. ARGININE [Concomitant]
     Active Substance: ARGININE
     Indication: MELAS syndrome
     Dosage: UNKNOWN
     Route: 065
  3. TAURINE [Concomitant]
     Active Substance: TAURINE
     Indication: MELAS syndrome
     Dosage: UNKNOWN
     Route: 065

REACTIONS (1)
  - Cerebrovascular accident [Recovered/Resolved]
